FAERS Safety Report 9253937 (Version 1)
Quarter: 2013Q2

REPORT INFORMATION
  Report Type: Spontaneous
  Country: US (occurrence: None)
  Receive Date: 20130422
  Receipt Date: 20130422
  Transmission Date: 20140414
  Serious: Yes (Other)
  Sender: FDA-Public Use
  Company Number: None

PATIENT
  Age: 77 Year
  Sex: Male
  Weight: 72.58 kg

DRUGS (1)
  1. LATANOPROST [Suspect]
     Indication: OPEN ANGLE GLAUCOMA
     Dosage: ONE DROP  ONCE PER DAY OPHTHALMIC ??TWICE
     Route: 047
     Dates: start: 20130419, end: 20130421

REACTIONS (1)
  - Dizziness [None]
